FAERS Safety Report 10101701 (Version 1)
Quarter: 2014Q2

REPORT INFORMATION
  Report Type: Spontaneous
  Country: US (occurrence: US)
  Receive Date: 20140424
  Receipt Date: 20140424
  Transmission Date: 20141212
  Serious: Yes (Other)
  Sender: FDA-Public Use
  Company Number: US-ROCHE-1388551

PATIENT
  Age: 6 Year
  Sex: Female

DRUGS (9)
  1. XOLAIR [Suspect]
     Indication: BRONCHOPULMONARY ASPERGILLOSIS ALLERGIC
     Route: 058
     Dates: start: 20140407
  2. PULMOZYME [Suspect]
     Indication: CYSTIC FIBROSIS
     Route: 065
  3. AQUADEKS [Concomitant]
     Indication: CYSTIC FIBROSIS
     Route: 065
  4. CREON [Concomitant]
     Dosage: 5 CAPSULES WITH MEALS AND SNACKS
     Route: 065
  5. PREDNISOLONE [Concomitant]
     Route: 065
  6. VORICONAZOLE [Concomitant]
     Route: 065
  7. ALBUTEROL [Concomitant]
     Route: 055
  8. MIRALAX [Concomitant]
     Dosage: AS NEEDED
     Route: 065
  9. RHINOCORT [Concomitant]
     Route: 045

REACTIONS (2)
  - Erythema [Not Recovered/Not Resolved]
  - Erythema [Not Recovered/Not Resolved]
